FAERS Safety Report 5663661-5 (Version None)
Quarter: 2008Q1

REPORT INFORMATION
  Report Type: 
  Country: None (occurrence: None)
  Receive Date: 20080310
  Receipt Date: 20080221
  Transmission Date: 20080703
  Serious: Yes (Life-Threatening, Hospitalization)
  Sender: FDA-Public Use
  Company Number: 2007EU001773

PATIENT
  Age: 26 Year
  Sex: Female

DRUGS (4)
  1. FK506 (TACROLIMUS) FORMUALTION UNKNOWN [Suspect]
     Indication: LIVER TRANSPLANT
     Dosage: 1 MG, BID
  2. PREDNISOLONE [Concomitant]
  3. MYCOPHENOLATE SODIUM (MYCOPHENOLATE SODIUM) [Concomitant]
  4. VALGANCICLOVIR HCL [Concomitant]

REACTIONS (12)
  - ALPHA HAEMOLYTIC STREPTOCOCCAL INFECTION [None]
  - BRONCHOALVEOLAR LAVAGE ABNORMAL [None]
  - CARDIAC MURMUR [None]
  - CHOLANGITIS [None]
  - ENDOCARDITIS CANDIDA [None]
  - INTERSTITIAL LUNG DISEASE [None]
  - LIVER ABSCESS [None]
  - ORAL CANDIDIASIS [None]
  - PORTAL VEIN STENOSIS [None]
  - PULMONARY EMBOLISM [None]
  - PULMONARY HYPERTENSION [None]
  - SYSTEMIC CANDIDA [None]
